FAERS Safety Report 6294469-8 (Version None)
Quarter: 2009Q3

REPORT INFORMATION
  Report Type: 
  Country: None (occurrence: None)
  Receive Date: 20090803
  Receipt Date: 20090722
  Transmission Date: 20100115
  Serious: Yes (Hospitalization)
  Sender: FDA-Public Use
  Company Number: EC-BAYER-200919367LA

PATIENT
  Age: 77 Year
  Sex: Male

DRUGS (7)
  1. AVELOX [Suspect]
     Indication: BRONCHITIS
     Dosage: TOTAL DAILY DOSE: 400 MG  UNIT DOSE: 400 MG
     Route: 048
     Dates: start: 20090518, end: 20090520
  2. SECOTEX [Concomitant]
     Indication: BENIGN PROSTATIC HYPERPLASIA
     Route: 065
     Dates: start: 19950101
  3. SERETRAN [Concomitant]
     Indication: DEPRESSION
     Dosage: TOTAL DAILY DOSE: 20 MG  UNIT DOSE: 20 MG
     Route: 048
     Dates: start: 20090715
  4. CLAVINEX [Concomitant]
     Indication: GINGIVAL INFECTION
     Dosage: TOTAL DAILY DOSE: 1500 MG  UNIT DOSE: 500 MG
     Route: 048
     Dates: start: 20090715
  5. NEURIL [Concomitant]
     Indication: DEPRESSION
     Dosage: TOTAL DAILY DOSE: 0.25 MG  UNIT DOSE: 2 MG
     Route: 048
     Dates: start: 20090715
  6. CEFTRALINA [Concomitant]
     Indication: DEPRESSION
     Route: 065
     Dates: start: 20090701
  7. XANAX [Concomitant]
     Indication: DEPRESSION
     Route: 065
     Dates: start: 20090701

REACTIONS (5)
  - ANXIETY [None]
  - ARRHYTHMIA [None]
  - ATRIAL FIBRILLATION [None]
  - DIZZINESS [None]
  - PAIN IN EXTREMITY [None]
